FAERS Safety Report 17505337 (Version 4)
Quarter: 2020Q2

REPORT INFORMATION
  Report Type: Report from Study
  Country: US (occurrence: US)
  Receive Date: 20200305
  Receipt Date: 20200601
  Transmission Date: 20200713
  Serious: Yes (Hospitalization, Other)
  Sender: FDA-Public Use
  Company Number: US-PFIZER INC-2019558375

PATIENT
  Age: 80 Year
  Sex: Female

DRUGS (2)
  1. IBRANCE [Suspect]
     Active Substance: PALBOCICLIB
     Indication: BREAST CANCER FEMALE
     Dosage: 100 MG, CYCLIC (ONCE DAILY 21 DAYS ON THEN OFF 7 DAYS)
     Route: 048
     Dates: start: 20191128, end: 202004
  2. IBRANCE [Suspect]
     Active Substance: PALBOCICLIB
     Dosage: 100 MG, CYCLIC (ONCE DAILY 21 DAYS ON THEN OFF 7 DAYS)
     Route: 048
     Dates: start: 20200430

REACTIONS (17)
  - Alopecia [Not Recovered/Not Resolved]
  - Rhinorrhoea [Not Recovered/Not Resolved]
  - Constipation [Unknown]
  - White blood cell count decreased [Unknown]
  - Chills [Unknown]
  - Haemorrhagic diathesis [Unknown]
  - Fatigue [Not Recovered/Not Resolved]
  - Lymphoedema [Unknown]
  - Stomatitis [Unknown]
  - Lacrimation increased [Not Recovered/Not Resolved]
  - Red blood cell count decreased [Unknown]
  - Memory impairment [Unknown]
  - Arthropod bite [Unknown]
  - Cough [Not Recovered/Not Resolved]
  - Pyrexia [Unknown]
  - Cellulitis [Unknown]
  - Depression [Unknown]

NARRATIVE: CASE EVENT DATE: 2019
